FAERS Safety Report 22659785 (Version 3)
Quarter: 2023Q4

REPORT INFORMATION
  Report Type: Spontaneous
  Country: US (occurrence: US)
  Receive Date: 20230630
  Receipt Date: 20231027
  Transmission Date: 20240110
  Serious: Yes (Other)
  Sender: FDA-Public Use
  Company Number: US-BAYER-2023A087911

PATIENT
  Age: 28 Year
  Sex: Male

DRUGS (1)
  1. JIVI [Suspect]
     Active Substance: DAMOCTOCOG ALFA PEGOL
     Dosage: 3960 DF

REACTIONS (2)
  - Haemarthrosis [Recovered/Resolved]
  - Product dose omission issue [None]

NARRATIVE: CASE EVENT DATE: 20230510
